FAERS Safety Report 7938553-9 (Version None)
Quarter: 2011Q4

REPORT INFORMATION
  Report Type: 
  Country: None (occurrence: None)
  Receive Date: 20111123
  Receipt Date: 20111110
  Transmission Date: 20120403
  Serious: Yes (Other)
  Sender: FDA-Public Use
  Company Number: US-WATSON-2011-18939

PATIENT
  Age: 9 Year
  Sex: Female

DRUGS (2)
  1. PREDNISONE TAB [Suspect]
     Indication: PEMPHIGUS
     Dosage: 160 MG DAILY
  2. PREDNISONE TAB [Suspect]
     Dosage: 80 MG DAILY

REACTIONS (5)
  - FLUID RETENTION [None]
  - MELAENA [None]
  - GROWTH RETARDATION [None]
  - CUSHINGOID [None]
  - HYPERGLYCAEMIA [None]
